FAERS Safety Report 7626277-7 (Version None)
Quarter: 2011Q3

REPORT INFORMATION
  Report Type: 
  Country: None (occurrence: None)
  Receive Date: 20110721
  Receipt Date: 20110713
  Transmission Date: 20111222
  Serious: Yes (Death, Hospitalization)
  Sender: FDA-Public Use
  Company Number: US-ACTELION-A-US2011-49169

PATIENT

DRUGS (4)
  1. REVATIO [Concomitant]
  2. REMODULIN [Concomitant]
  3. TRACLEER [Suspect]
     Dosage: UNK
     Route: 048
     Dates: start: 20050718, end: 20060101
  4. TRACLEER [Suspect]
     Indication: PULMONARY ARTERIAL HYPERTENSION
     Dosage: 125 MG, BID
     Route: 048
     Dates: start: 20060101, end: 20110601

REACTIONS (3)
  - PULMONARY HYPERTENSION [None]
  - CARDIAC DISORDER [None]
  - RESPIRATORY FAILURE [None]
